FAERS Safety Report 17477877 (Version 1)
Quarter: 2020Q1

REPORT INFORMATION
  Report Type: Report from Study
  Country: CA (occurrence: CA)
  Receive Date: 20200228
  Receipt Date: 20200228
  Transmission Date: 20200409
  Serious: Yes (Death, Life-Threatening)
  Sender: FDA-Public Use
  Company Number: CA-JNJFOC-20191138354

PATIENT
  Sex: Male

DRUGS (1)
  1. STELARA [Suspect]
     Active Substance: USTEKINUMAB
     Indication: PSORIASIS
     Dosage: STRENGTH = 90 MG
     Route: 058
     Dates: start: 20171128, end: 20191106

REACTIONS (13)
  - Hepatic encephalopathy [Unknown]
  - Nephrolithiasis [Unknown]
  - Intervertebral disc degeneration [Unknown]
  - Gastric varices [Unknown]
  - Pancreatitis [Unknown]
  - Death [Fatal]
  - Dry mouth [Unknown]
  - Autoimmune hepatitis [Unknown]
  - Mitral valve prolapse [Unknown]
  - Hepatic cirrhosis [Unknown]
  - Psoriasis [Unknown]
  - Rheumatoid arthritis [Unknown]
  - Keratitis [Unknown]
